FAERS Safety Report 10970392 (Version 1)
Quarter: 2015Q1

REPORT INFORMATION
  Report Type: Spontaneous
  Country: GB (occurrence: GB)
  Receive Date: 20150331
  Receipt Date: 20150331
  Transmission Date: 20150721
  Serious: Yes (Other)
  Sender: FDA-Public Use
  Company Number: GB-SA-2015SA037218

PATIENT
  Age: 82 Year
  Sex: Female

DRUGS (1)
  1. INSULIN GLARGINE [Suspect]
     Active Substance: INSULIN GLARGINE
     Route: 058

REACTIONS (5)
  - Bradycardia [Recovered/Resolved]
  - Wrong patient received medication [Unknown]
  - Cold sweat [Recovered/Resolved]
  - Listless [Recovered/Resolved]
  - Hyporesponsive to stimuli [Recovered/Resolved]

NARRATIVE: CASE EVENT DATE: 20150221
